FAERS Safety Report 6046197-1 (Version None)
Quarter: 2009Q1

REPORT INFORMATION
  Report Type: 
  Country: None (occurrence: None)
  Receive Date: 20090121
  Receipt Date: 20090121
  Transmission Date: 20090719
  Serious: Yes (Other)
  Sender: FDA-Public Use
  Company Number: None

PATIENT
  Age: 61 Year
  Sex: Female
  Weight: 96.1626 kg

DRUGS (3)
  1. CITALOPRAM HYDROBROMIDE [Suspect]
     Indication: CONVERSION DISORDER
     Dosage: 20 MGS IN A.M.; 10 MGS IN P.M. ONCE A DAY
     Dates: start: 20080701, end: 20080801
  2. CITALOPRAM HYDROBROMIDE [Suspect]
     Indication: THROAT TIGHTNESS
     Dosage: 20 MGS IN A.M.; 10 MGS IN P.M. ONCE A DAY
     Dates: start: 20080701, end: 20080801
  3. CELEXA [Suspect]

REACTIONS (5)
  - DEPRESSION [None]
  - DRUG INEFFECTIVE [None]
  - SOMNOLENCE [None]
  - THERAPEUTIC RESPONSE UNEXPECTED WITH DRUG SUBSTITUTION [None]
  - THROAT TIGHTNESS [None]
